FAERS Safety Report 12184756 (Version 1)
Quarter: 2016Q1

REPORT INFORMATION
  Report Type: Spontaneous
  Country: US (occurrence: US)
  Receive Date: 20160316
  Receipt Date: 20160316
  Transmission Date: 20160526
  Serious: No
  Sender: FDA-Public Use
  Company Number: US-PFIZER INC-2016143435

PATIENT
  Age: 85 Year
  Sex: Female

DRUGS (6)
  1. INVANZ [Concomitant]
     Active Substance: ERTAPENEM SODIUM
     Indication: PNEUMONIA BACTERIAL
  2. NORVASC [Concomitant]
     Active Substance: AMLODIPINE BESYLATE
  3. ZYVOX [Suspect]
     Active Substance: LINEZOLID
     Indication: PNEUMONIA BACTERIAL
  4. ZYVOX [Suspect]
     Active Substance: LINEZOLID
     Indication: STAPHYLOCOCCAL INFECTION
     Dosage: UNK
  5. PLAQUENIL [Concomitant]
     Active Substance: HYDROXYCHLOROQUINE SULFATE
  6. INVANZ [Concomitant]
     Active Substance: ERTAPENEM SODIUM
     Indication: STAPHYLOCOCCAL INFECTION

REACTIONS (4)
  - Productive cough [Unknown]
  - Cough [Unknown]
  - Product use issue [Unknown]
  - Rhonchi [Unknown]
